FAERS Safety Report 8289364-9 (Version None)
Quarter: 2012Q2

REPORT INFORMATION
  Report Type: 
  Country: None (occurrence: None)
  Receive Date: 20120417
  Receipt Date: 20120403
  Transmission Date: 20120825
  Serious: Yes (Other)
  Sender: FDA-Public Use
  Company Number: GB-RANBAXY-2012R1-55366

PATIENT
  Age: 16 Year
  Sex: Male

DRUGS (3)
  1. ACETAMINOPHEN [Concomitant]
     Indication: NASOPHARYNGITIS
     Dosage: UNK
     Route: 065
  2. AMOXICILLIN [Suspect]
     Indication: LOWER RESPIRATORY TRACT INFECTION
     Dosage: 250 MG, TID
     Route: 048
     Dates: start: 20120320
  3. CLOTRIMAZOLE [Suspect]
     Indication: PRODUCT USED FOR UNKNOWN INDICATION
     Dosage: UNK
     Route: 003
     Dates: start: 20120320

REACTIONS (2)
  - RASH [None]
  - CONDITION AGGRAVATED [None]
